FAERS Safety Report 8468878-2 (Version None)
Quarter: 2012Q2

REPORT INFORMATION
  Report Type: 
  Country: None (occurrence: None)
  Receive Date: 20120626
  Receipt Date: 20120619
  Transmission Date: 20120825
  Serious: Yes (Other)
  Sender: FDA-Public Use
  Company Number: US-PFIZER INC-2012148785

PATIENT
  Sex: Male
  Weight: 81.633 kg

DRUGS (4)
  1. VENLAFAXINE HCL [Suspect]
     Indication: DEPRESSION
  2. VENLAFAXINE HCL [Suspect]
     Indication: POST-TRAUMATIC STRESS DISORDER
     Dosage: 37.5 MG, 1X/DAY
     Route: 048
     Dates: start: 20120604, end: 20120619
  3. VALIUM [Concomitant]
     Indication: ANXIETY
     Dosage: UNK
     Route: 048
     Dates: end: 20120601
  4. VALIUM [Concomitant]
     Indication: SLEEP DISORDER

REACTIONS (11)
  - SPEECH DISORDER [None]
  - EMOTIONAL DISORDER [None]
  - FEELING ABNORMAL [None]
  - HYPERTENSION [None]
  - EYELID FUNCTION DISORDER [None]
  - MUSCULAR WEAKNESS [None]
  - MUSCULOSKELETAL STIFFNESS [None]
  - TREMOR [None]
  - CRYING [None]
  - DYSTONIA [None]
  - ABASIA [None]
